FAERS Safety Report 4534649-2 (Version None)
Quarter: 2004Q4

REPORT INFORMATION
  Report Type: 
  Country: None (occurrence: None)
  Receive Date: 20041214
  Receipt Date: 20041013
  Transmission Date: 20050328
  Serious: No
  Sender: FDA-Public Use
  Company Number: 2004239915US

PATIENT
  Age: 47 Year
  Sex: Female

DRUGS (2)
  1. BEXTRA [Suspect]
     Indication: BACK PAIN
     Dosage: 20 MG, ORAL
     Route: 048
     Dates: start: 20041012
  2. AMBIEN [Concomitant]

REACTIONS (4)
  - DELIRIUM [None]
  - HAEMATOCHEZIA [None]
  - RETCHING [None]
  - VOMITING [None]
